FAERS Safety Report 5758225-9 (Version None)
Quarter: 2008Q2

REPORT INFORMATION
  Report Type: 
  Country: None (occurrence: None)
  Receive Date: 20080604
  Receipt Date: 20080602
  Transmission Date: 20081010
  Serious: Yes (Other)
  Sender: FDA-Public Use
  Company Number: ES-BRISTOL-MYERS SQUIBB COMPANY-14212245

PATIENT
  Age: 42 Year
  Sex: Male

DRUGS (5)
  1. CYCLOPHOSPHAMIDE [Suspect]
     Indication: BONE MARROW CONDITIONING REGIMEN
     Dosage: ADMINISTERED FOR 2DAYS
  2. BUSULFAN [Suspect]
     Indication: BONE MARROW CONDITIONING REGIMEN
     Dosage: ADMINISTERED FOR 4DAYS
  3. METHOTREXATE [Suspect]
  4. CYCLOSPORINE [Suspect]
  5. ISONIAZID [Suspect]

REACTIONS (3)
  - CYTOMEGALOVIRUS ANTIGEN POSITIVE [None]
  - GRAFT VERSUS HOST DISEASE [None]
  - VENOOCCLUSIVE DISEASE [None]
